FAERS Safety Report 4871689-8 (Version None)
Quarter: 2006Q1

REPORT INFORMATION
  Report Type: 
  Country: None (occurrence: None)
  Receive Date: 20060104
  Receipt Date: 20051116
  Transmission Date: 20060701
  Serious: Yes (Death, Other)
  Sender: FDA-Public Use
  Company Number: JP-GILEAD-2005-0008940

PATIENT
  Sex: Male

DRUGS (14)
  1. HEPSERA [Suspect]
     Indication: HEPATITIS B
     Route: 048
     Dates: start: 20030930, end: 20031008
  2. HEPSERA [Suspect]
     Indication: HEPATIC CIRRHOSIS
     Route: 048
     Dates: start: 20030918, end: 20030929
  3. HEPSERA [Suspect]
     Route: 048
     Dates: start: 20030916, end: 20030917
  4. ZEFFIX [Suspect]
     Indication: DRUG USE FOR UNKNOWN INDICATION
     Route: 048
     Dates: start: 20020220, end: 20031008
  5. URSODEOXYCHOLIC ACID [Concomitant]
  6. LACTULOSE [Concomitant]
  7. ROXATIDINE ACETATE HCL [Concomitant]
  8. KANAMYCIN [Concomitant]
  9. SPIRONOLACTONE [Concomitant]
  10. SODIUM ALGINATE [Concomitant]
  11. LACTIC-ACID PRODUCING ORGANISMS [Concomitant]
  12. AMINOLEBAN [Concomitant]
  13. FRUSEMIDE [Concomitant]
  14. STRONG NEO-MINOPHAGEN C [Concomitant]

REACTIONS (3)
  - HEPATIC CIRRHOSIS [None]
  - HEPATIC FAILURE [None]
  - ORAL INTAKE REDUCED [None]
